FAERS Safety Report 6040833-1 (Version None)
Quarter: 2009Q1

REPORT INFORMATION
  Report Type: 
  Country: None (occurrence: None)
  Receive Date: 20090116
  Receipt Date: 20080609
  Transmission Date: 20090719
  Serious: Yes (Hospitalization)
  Sender: FDA-Public Use
  Company Number: US-BRISTOL-MYERS SQUIBB COMPANY-14221220

PATIENT
  Age: 53 Year
  Sex: Female
  Weight: 66 kg

DRUGS (2)
  1. ABILIFY [Suspect]
     Dosage: TAKEN APPROXIMATELY 70 DAYS.
  2. FISH OIL [Concomitant]

REACTIONS (2)
  - BACK PAIN [None]
  - HOSPITALISATION [None]
